FAERS Safety Report 4685104-0 (Version None)
Quarter: 2005Q2

REPORT INFORMATION
  Report Type: 
  Country: None (occurrence: None)
  Receive Date: 20050531
  Receipt Date: 20050215
  Transmission Date: 20051028
  Serious: No
  Sender: FDA-Public Use
  Company Number: FABR-11024

PATIENT
  Age: 51 Year
  Sex: Female
  Weight: 59.8748 kg

DRUGS (8)
  1. FABRAZYME [Suspect]
     Indication: FABRY'S DISEASE
     Dosage: 60 MG Q2WKS IV
     Route: 042
     Dates: start: 20050105
  2. ZITHROMAX [Suspect]
     Indication: EAR DISORDER
     Dates: start: 20050111, end: 20050116
  3. ZITHROMAX [Suspect]
     Indication: INFLAMMATION
     Dates: start: 20050111, end: 20050116
  4. ZITHROMAX [Suspect]
     Indication: EAR DISORDER
     Dates: start: 20050220, end: 20050226
  5. ZITHROMAX [Suspect]
     Indication: INFLAMMATION
     Dates: start: 20050220, end: 20050226
  6. AMBIEN [Concomitant]
  7. TYLENOL (CAPLET) [Concomitant]
  8. HYDROXYZINE [Concomitant]

REACTIONS (6)
  - CHEST DISCOMFORT [None]
  - CHILLS [None]
  - COUGH [None]
  - FATIGUE [None]
  - HEADACHE [None]
  - RASH PAPULAR [None]
